FAERS Safety Report 8392025-9 (Version None)
Quarter: 2012Q1

REPORT INFORMATION
  Report Type: 
  Country: None (occurrence: None)
  Receive Date: 20120323
  Receipt Date: 20110314
  Transmission Date: 20120608
  Serious: Yes (Other)
  Sender: FDA-Public Use
  Company Number: 163-21880-11030059

PATIENT

DRUGS (18)
  1. ZYLOPRIM (ALLOPURINOL)(100 MILLIGRAM, TABLETS) [Concomitant]
  2. ZOFRAN (ONDANSETRON HYDROCHLORIDE) (8 MILLIGRAM, TABLETS) [Concomitant]
  3. SENNA-LAX (SENNOSIDE A+B)(8.6 MILLIGRAM, TABLETS) [Concomitant]
  4. MULTIVITAMINS (MULTIVITAMINS)(UNKNOWN) [Concomitant]
  5. DECADRON [Concomitant]
  6. MYCOSTATIN (NYSTATIN)(POWDER) [Concomitant]
  7. REVLIMID [Suspect]
     Indication: MULTIPLE MYELOMA
     Dosage: 25 MG, 1 IN 1 D, PO,25 MG, TWICE A WEEK, PO, 5 MQ, 1 IN 1 D, PO
     Route: 048
     Dates: start: 20110228
  8. REVLIMID [Suspect]
     Indication: MULTIPLE MYELOMA
     Dosage: 25 MG, 1 IN 1 D, PO,25 MG, TWICE A WEEK, PO, 5 MQ, 1 IN 1 D, PO
     Route: 048
     Dates: start: 20100923
  9. ATIVAN (LORAZEPAM)(0.5 MILLIGRAM, TABLETS) [Concomitant]
  10. LOTRIMIN (CLOTRIMAZOLE)(1 PERCENT, UNKNOWN) [Concomitant]
  11. LOPRESSOR (METOPROLOL TARTRATE)(50 MILLIGRAM, TABLETS) [Concomitant]
  12. PERCOCET [Concomitant]
  13. NEURONTIN [Concomitant]
  14. PRILOSEC(OMEPRAZOLE)(40 MILLIGRAM, CAPSULES) [Concomitant]
  15. COMPAZINE (PROCHLORPERAZINE EDISYLATE)(10 MILLIGRAM, TABLETS) [Concomitant]
  16. OXYCONTIN (OXYCODONE HYDROC#ILORIDE)(20 MILLIGRAM,TABLET [Concomitant]
  17. REMERON (MIRTAZAPINE)(15 MILLIGRAM, TABLETS) [Concomitant]
  18. TYLENOL (PARACETAMOL)(325 MILLIGRAM, TABLETS) [Concomitant]

REACTIONS (2)
  - RENAL FAILURE [None]
  - NEUTROPENIA [None]
